FAERS Safety Report 20493704 (Version 1)
Quarter: 2022Q1

REPORT INFORMATION
  Report Type: Spontaneous
  Country: JP (occurrence: JP)
  Receive Date: 20220221
  Receipt Date: 20220221
  Transmission Date: 20220423
  Serious: Yes (Other)
  Sender: FDA-Public Use
  Company Number: JP-SUN PHARMACEUTICAL INDUSTRIES LTD-2022RR-327131

PATIENT
  Age: 79 Year
  Sex: Male

DRUGS (4)
  1. OXALIPLATIN [Suspect]
     Active Substance: OXALIPLATIN
     Indication: Colorectal cancer
     Dosage: 1200 MILLIGRAM, DAILY
     Route: 065
  2. OXALIPLATIN [Suspect]
     Active Substance: OXALIPLATIN
     Dosage: 160 MILLIGRAM, DAILY
     Route: 065
  3. AZACITIDINE [Suspect]
     Active Substance: AZACITIDINE
     Indication: Colorectal cancer
     Dosage: 100 MILLIGRAM/ BODY, EVERY 4 WEEKS
  4. CAPECITABINE [Suspect]
     Active Substance: CAPECITABINE
     Indication: Colorectal cancer
     Dosage: 1800 MILLIGRAM, BID, DAY 1-14
     Route: 065

REACTIONS (4)
  - Acute myeloid leukaemia [Not Recovered/Not Resolved]
  - General physical health deterioration [Not Recovered/Not Resolved]
  - White blood cell count increased [Unknown]
  - Disease recurrence [Unknown]
